FAERS Safety Report 5287948-3 (Version None)
Quarter: 2007Q2

REPORT INFORMATION
  Report Type: 
  Country: None (occurrence: None)
  Receive Date: 20070405
  Receipt Date: 20070329
  Transmission Date: 20071010
  Serious: Yes (Other)
  Sender: FDA-Public Use
  Company Number: TW-JNJFOC-20070307264

PATIENT
  Sex: Male

DRUGS (7)
  1. HALOPERIDOL [Suspect]
     Indication: AGITATION
  2. ZUCLOPENTHIXOL [Concomitant]
  3. LORAZEPAM [Concomitant]
  4. FLUOXETINE [Concomitant]
  5. ALPRAZOLAM [Concomitant]
  6. SULPIRIDE [Concomitant]
  7. TRIHEXYPHENIDYL HCL [Concomitant]

REACTIONS (1)
  - ARRHYTHMIA [None]
